FAERS Safety Report 7357307-8 (Version None)
Quarter: 2011Q1

REPORT INFORMATION
  Report Type: 
  Country: None (occurrence: None)
  Receive Date: 20110311
  Receipt Date: 20110311
  Transmission Date: 20110831
  Serious: Yes (Other)
  Sender: FDA-Public Use
  Company Number: None

PATIENT
  Age: 52 Year
  Sex: Male
  Weight: 76 kg

DRUGS (1)
  1. METHYLNALTREXONE [Suspect]
     Indication: CONSTIPATION
     Dosage: 12MG EVERY OTHER DAY SQ
     Dates: start: 20091222, end: 20091222

REACTIONS (3)
  - DYSPNOEA [None]
  - CHILLS [None]
  - TACHYCARDIA [None]
